FAERS Safety Report 7902700-5 (Version None)
Quarter: 2011Q4

REPORT INFORMATION
  Report Type: 
  Country: None (occurrence: None)
  Receive Date: 20111108
  Receipt Date: 20111103
  Transmission Date: 20120403
  Serious: Yes (Death)
  Sender: FDA-Public Use
  Company Number: US-ASTRAZENECA-2011SE66659

PATIENT
  Sex: Female

DRUGS (3)
  1. ANTIDEPRESSANT [Concomitant]
  2. MOOD STABILIZER [Concomitant]
  3. SEROQUEL XR [Suspect]
     Route: 048

REACTIONS (5)
  - OBESITY [None]
  - SLEEP APNOEA SYNDROME [None]
  - DEATH [None]
  - BIPOLAR DISORDER [None]
  - SOMNOLENCE [None]
